FAERS Safety Report 22118588 (Version 5)
Quarter: 2025Q1

REPORT INFORMATION
  Report Type: Spontaneous
  Country: US (occurrence: US)
  Receive Date: 20230321
  Receipt Date: 20250130
  Transmission Date: 20250408
  Serious: Yes (Other)
  Sender: AMGEN
  Company Number: US-AMGEN-USASP2023047544

PATIENT
  Age: 58 Year
  Sex: Female
  Weight: 96.599 kg

DRUGS (7)
  1. OTEZLA [Suspect]
     Active Substance: APREMILAST
     Indication: Psoriatic arthropathy
     Dosage: 30 MILLIGRAM, BID
     Route: 048
     Dates: start: 20190326
  2. ENBREL [Suspect]
     Active Substance: ETANERCEPT
     Indication: Product used for unknown indication
     Route: 065
  3. TREMFYA [Concomitant]
     Active Substance: GUSELKUMAB
     Dosage: UNK UNK, Q8WK (100 MILLIGRAM PER MILLILITRE) SYR 1 ML
     Route: 058
  4. AVALIDE [Concomitant]
     Active Substance: HYDROCHLOROTHIAZIDE\IRBESARTAN
  5. METFORMIN [Concomitant]
     Active Substance: METFORMIN HYDROCHLORIDE
     Dosage: 500 MILLIGRAM, QD
  6. IRBESART AND HYDROCHLOROTHIAZIDE [Concomitant]
     Dosage: 1 DOSAGE FORM, QD
  7. KENALOG [Concomitant]
     Active Substance: TRIAMCINOLONE ACETONIDE

REACTIONS (3)
  - Rheumatoid arthritis [Unknown]
  - Psoriatic arthropathy [Recovering/Resolving]
  - Psoriasis [Unknown]
